FAERS Safety Report 15093412 (Version 1)
Quarter: 2018Q2

REPORT INFORMATION
  Report Type: Spontaneous
  Country: JP (occurrence: JP)
  Receive Date: 20180629
  Receipt Date: 20180629
  Transmission Date: 20180711
  Serious: Yes (Death, Life-Threatening)
  Sender: FDA-Public Use
  Company Number: JP-GE HEALTHCARE LIFE SCIENCES-2018CSU002384

PATIENT

DRUGS (16)
  1. PRAVASTATIN                        /00880402/ [Concomitant]
     Active Substance: PRAVASTATIN SODIUM
     Indication: HYPERLIPIDAEMIA
     Dosage: UNK, BID
     Route: 048
     Dates: start: 19911221
  2. OLMESARTAN                         /01635402/ [Concomitant]
     Active Substance: OLMESARTAN MEDOXOMIL
     Indication: HYPERTENSION
     Dosage: UNK, BID
     Route: 048
     Dates: start: 20140207
  3. TRANSAMIN [Concomitant]
     Active Substance: TRANEXAMIC ACID
     Dosage: UNK
     Route: 065
     Dates: start: 20180607
  4. ADALAT [Concomitant]
     Active Substance: NIFEDIPINE
     Indication: HYPERTENSION
     Dosage: UNK, BID
     Route: 048
     Dates: start: 20171225
  5. CALONAL [Concomitant]
     Active Substance: ACETAMINOPHEN
     Dosage: UNK
     Route: 065
     Dates: start: 20180607
  6. NIVADIL [Concomitant]
     Active Substance: NILVADIPINE
     Indication: HYPERTENSION
     Dosage: UNK, BID
     Route: 048
     Dates: start: 19900203
  7. ITOROL [Concomitant]
     Active Substance: ISOSORBIDE MONONITRATE
     Indication: ANGINA PECTORIS
     Dosage: UNK, BID
     Route: 048
     Dates: start: 20090106
  8. RABEPRAZOLE                        /01417202/ [Concomitant]
     Active Substance: RABEPRAZOLE SODIUM
     Indication: GASTROOESOPHAGEAL REFLUX DISEASE
     Dosage: UNK, QD
     Route: 048
     Dates: start: 20140421
  9. TRAMAL [Concomitant]
     Active Substance: TRAMADOL
     Dosage: UNK
     Route: 065
  10. LIMAPROST ALFADEX [Concomitant]
     Active Substance: LIMAPROST
     Dosage: UNK
     Route: 065
  11. OMNIPAQUE [Suspect]
     Active Substance: IOHEXOL
     Indication: CHOLANGITIS
     Dosage: 100 ML, SINGLE
     Route: 042
     Dates: start: 20180608, end: 20180608
  12. REBAMIPIDE [Concomitant]
     Active Substance: REBAMIPIDE
     Indication: GASTRITIS
     Dosage: UNK, TID
     Route: 048
     Dates: start: 2009
  13. MAGMITT [Concomitant]
     Active Substance: MAGNESIUM OXIDE
     Indication: CONSTIPATION
     Dosage: UNK, TID
     Route: 048
     Dates: start: 20140317
  14. WARFARIN                           /00014803/ [Concomitant]
     Active Substance: WARFARIN
     Indication: ATRIAL FIBRILLATION
     Dosage: UNK, QD
     Route: 048
     Dates: start: 19940913
  15. ARRESTEN [Concomitant]
     Indication: HYPERTENSION
     Dosage: UNK, QD
     Route: 048
     Dates: start: 19900203
  16. BAYASPIRIN [Concomitant]
     Active Substance: ASPIRIN
     Indication: ANGINA PECTORIS
     Dosage: UNK, QD
     Route: 048
     Dates: start: 20090106

REACTIONS (4)
  - Ventricular fibrillation [Not Recovered/Not Resolved]
  - Acute myocardial infarction [Fatal]
  - Anaphylactic shock [Fatal]
  - Cardio-respiratory arrest [Not Recovered/Not Resolved]

NARRATIVE: CASE EVENT DATE: 20180608
